FAERS Safety Report 18665975 (Version 1)
Quarter: 2020Q4

REPORT INFORMATION
  Report Type: Spontaneous
  Country: FR (occurrence: FR)
  Receive Date: 20201226
  Receipt Date: 20201226
  Transmission Date: 20210114
  Serious: Yes (Hospitalization)
  Sender: FDA-Public Use
  Company Number: FR-TEVA-2020-FR-1860790

PATIENT
  Age: 22 Year
  Sex: Male

DRUGS (5)
  1. SKENAN [Suspect]
     Active Substance: MORPHINE SULFATE
     Route: 042
     Dates: start: 202009, end: 20201102
  2. OXYCODONE [Suspect]
     Active Substance: OXYCODONE
     Dosage: 120MILLIGRAM
     Route: 042
     Dates: start: 202009, end: 20201102
  3. TRAMADOL (CHLORHYDRATE DE) [Suspect]
     Active Substance: TRAMADOL HYDROCHLORIDE
     Route: 065
     Dates: start: 2020, end: 20201102
  4. SUBOXONE [Suspect]
     Active Substance: BUPRENORPHINE HYDROCHLORIDE\NALOXONE HYDROCHLORIDE
     Route: 065
     Dates: start: 2020, end: 20201102
  5. QUASYM [Suspect]
     Active Substance: METHYLPHENIDATE HYDROCHLORIDE
     Route: 042
     Dates: start: 202010

REACTIONS (5)
  - Withdrawal syndrome [Recovered/Resolved]
  - Intentional product misuse [Recovering/Resolving]
  - Chills [Recovered/Resolved]
  - Hyperthermia [Recovered/Resolved]
  - Dyspnoea [Recovered/Resolved]

NARRATIVE: CASE EVENT DATE: 2020
